FAERS Safety Report 26115991 (Version 2)
Quarter: 2025Q4

REPORT INFORMATION
  Report Type: Spontaneous
  Country: EU (occurrence: EU)
  Receive Date: 20251203
  Receipt Date: 20251205
  Transmission Date: 20260118
  Serious: Yes (Other)
  Sender: SANDOZ
  Company Number: EU-AMGEN-CZESP2025224521

PATIENT
  Age: 42 Year
  Sex: Male

DRUGS (3)
  1. ADALIMUMAB [Suspect]
     Active Substance: ADALIMUMAB
     Indication: Hidradenitis
     Dosage: UNK
     Route: 065
  2. ADALIMUMAB [Suspect]
     Active Substance: ADALIMUMAB
     Indication: Spinal osteoarthritis
  3. EVENITY [Suspect]
     Active Substance: ROMOSOZUMAB-AQQG
     Indication: Osteoporosis
     Dosage: UNK
     Route: 065

REACTIONS (6)
  - Spinal fracture [Unknown]
  - Compression fracture [Unknown]
  - Osteoporosis [Unknown]
  - Body height decreased [Unknown]
  - Off label use [Unknown]
  - Drug ineffective for unapproved indication [Unknown]
